FAERS Safety Report 7408535-4 (Version None)
Quarter: 2011Q2

REPORT INFORMATION
  Report Type: 
  Country: None (occurrence: None)
  Receive Date: 20110412
  Receipt Date: 20110407
  Transmission Date: 20111010
  Serious: Yes (Other)
  Sender: FDA-Public Use
  Company Number: IT-PFIZER INC-2011073008

PATIENT
  Age: 31 Year
  Sex: Male

DRUGS (7)
  1. INDINAVIR [Suspect]
     Indication: HIV INFECTION
     Dosage: UNK
     Dates: start: 19970601, end: 19981101
  2. LAMIVUDINE [Suspect]
     Indication: HIV INFECTION
     Dosage: UNK
     Dates: start: 19970601, end: 19981101
  3. NELFINAVIR MESILATE [Suspect]
     Indication: HIV INFECTION
     Dosage: UNK
     Dates: start: 19981201, end: 20000301
  4. SAQUINAVIR [Suspect]
     Indication: HIV INFECTION
     Dosage: UNK
     Dates: start: 20000301, end: 20050301
  5. STAVUDINE [Suspect]
     Indication: HIV INFECTION
     Dosage: UNK
     Dates: start: 19981201, end: 20000301
  6. ZIDOVUDINE [Suspect]
     Indication: HIV INFECTION
     Dosage: UNK
     Dates: start: 19970601, end: 19981101
  7. NEVIRAPINE [Suspect]
     Indication: HIV INFECTION
     Dosage: UNK
     Dates: start: 19981201, end: 20000301

REACTIONS (5)
  - NEPHROLITHIASIS [None]
  - ANAEMIA [None]
  - ABDOMINAL PAIN [None]
  - DIARRHOEA [None]
  - DRUG RESISTANCE [None]
